FAERS Safety Report 7907120-5 (Version None)
Quarter: 2011Q4

REPORT INFORMATION
  Report Type: 
  Country: None (occurrence: None)
  Receive Date: 20111110
  Receipt Date: 20110816
  Transmission Date: 20120403
  Serious: No
  Sender: FDA-Public Use
  Company Number: US-ASTRAZENECA-2011SE49280

PATIENT

DRUGS (11)
  1. LISINOPRIL [Suspect]
     Route: 048
  2. BENZONATATE [Concomitant]
  3. TRANCYPROMINE SULF [Concomitant]
  4. DESOGESTREL AND ETHINYL ESTRADIOL [Concomitant]
  5. AMOXICILLIN [Concomitant]
  6. ALPRAZOLAM [Concomitant]
  7. AMPHETAMINE AND DEXTROAMPHETAMINE SALTS [Concomitant]
  8. TEMAZEPAM [Concomitant]
  9. AZITHROMYCIN [Concomitant]
  10. ABILIFY [Concomitant]
  11. LEVOTHYROXINE SODIUM [Concomitant]

REACTIONS (1)
  - PANIC ATTACK [None]
